FAERS Safety Report 18450744 (Version 2)
Quarter: 2021Q1

REPORT INFORMATION
  Report Type: Spontaneous
  Country: AE (occurrence: AE)
  Receive Date: 20201030
  Receipt Date: 20210108
  Transmission Date: 20210419
  Serious: Yes (Death)
  Sender: FDA-Public Use
  Company Number: AE-ROCHE-2700615

PATIENT
  Sex: Female

DRUGS (3)
  1. AVASTIN [Suspect]
     Active Substance: BEVACIZUMAB
     Indication: COLORECTAL CANCER
     Dosage: 2ND LINE TREATMENT
     Route: 065
     Dates: start: 20180501, end: 20200201
  2. OXALIPLATIN. [Suspect]
     Active Substance: OXALIPLATIN
     Indication: COLORECTAL CANCER
     Dosage: FIRST LINE TREATMENT
     Route: 065
     Dates: start: 20170501, end: 20171001
  3. CAPECITABINE. [Suspect]
     Active Substance: CAPECITABINE
     Indication: COLORECTAL CANCER
     Dosage: FIRST LINE TREATMENT
     Route: 065
     Dates: start: 20170501, end: 20171001

REACTIONS (1)
  - COVID-19 [Fatal]
